FAERS Safety Report 14728644 (Version 1)
Quarter: 2018Q2

REPORT INFORMATION
  Report Type: Spontaneous
  Country: US (occurrence: US)
  Receive Date: 20180406
  Receipt Date: 20180406
  Transmission Date: 20180711
  Serious: No
  Sender: FDA-Public Use
  Company Number: US-JNJFOC-20180323800

PATIENT
  Sex: Female
  Weight: 61.22 kg

DRUGS (3)
  1. OPSUMIT [Interacting]
     Active Substance: MACITENTAN
     Indication: PULMONARY HYPERTENSION
     Route: 048
     Dates: start: 20170306
  2. ITRACONAZOLE. [Suspect]
     Active Substance: ITRACONAZOLE
     Indication: EXPOSURE TO MOULD
     Route: 065
  3. UPTRAVI [Suspect]
     Active Substance: SELEXIPAG
     Indication: PULMONARY HYPERTENSION
     Route: 048

REACTIONS (3)
  - Drug interaction [Unknown]
  - Influenza like illness [Unknown]
  - Dizziness [Unknown]
